FAERS Safety Report 8093907-8 (Version None)
Quarter: 2012Q1

REPORT INFORMATION
  Report Type: 
  Country: None (occurrence: None)
  Receive Date: 20120131
  Receipt Date: 20120124
  Transmission Date: 20120608
  Serious: Yes (Other)
  Sender: FDA-Public Use
  Company Number: PHHY2010FR093523

PATIENT
  Sex: Male
  Weight: 69 kg

DRUGS (11)
  1. ESTRACYT [Concomitant]
     Indication: PROSTATE CANCER
     Dosage: 140 MG, QID
     Route: 048
     Dates: start: 20091101
  2. LEUPROLIDE ACETATE [Concomitant]
     Dosage: 3.75 MG, UNK
     Dates: start: 20071204
  3. ASPIRIN [Concomitant]
     Indication: ANTICOAGULANT THERAPY
     Dosage: 75 MG, DAILY
  4. HYDROCORTISONE [Concomitant]
     Indication: PROSTATE CANCER
     Dosage: 10 MG, TID
     Route: 048
     Dates: start: 20091101
  5. DIAMICRON [Concomitant]
     Indication: DIABETES MELLITUS
  6. ZOMETA [Suspect]
     Indication: PROSTATE CANCER
     Dosage: 4 MG/5ML
     Route: 042
     Dates: start: 20090724, end: 20100604
  7. DOCETAXEL [Concomitant]
     Indication: PROSTATE CANCER
     Dosage: 40 MG/M2, UNK
     Dates: start: 20090710, end: 20090821
  8. TAXOL [Concomitant]
     Indication: PROSTATE CANCER
     Dosage: 80 MG/M2, UNK
     Dates: start: 20091009, end: 20100212
  9. ANDROCUR [Concomitant]
     Indication: HOT FLUSH
     Dosage: 50 MG, DAILY
     Dates: start: 20080819
  10. FENOFIBRATE [Concomitant]
     Indication: HYPERCHOLESTEROLAEMIA
     Dosage: 145 MG, UNK
  11. CASODEX [Concomitant]
     Dosage: 50 MG, DAILY
     Dates: start: 20080207

REACTIONS (15)
  - GENERAL PHYSICAL HEALTH DETERIORATION [None]
  - ERYTHEMA [None]
  - OSTEONECROSIS OF JAW [None]
  - TOOTH ABSCESS [None]
  - GINGIVITIS [None]
  - ORAL DISORDER [None]
  - HYPOPHAGIA [None]
  - IMPAIRED HEALING [None]
  - OEDEMA PERIPHERAL [None]
  - GINGIVAL INFECTION [None]
  - PAIN [None]
  - BONE LESION [None]
  - ANAEMIA [None]
  - ORAL PAIN [None]
  - ASTHENIA [None]
